FAERS Safety Report 8758232 (Version 1)
Quarter: 2012Q4

REPORT INFORMATION
  Report Type: Spontaneous
  Country: US (occurrence: None)
  Receive Date: 20120828
  Receipt Date: 20120828
  Transmission Date: 20130627
  Serious: Yes (Disabling, Other)
  Sender: FDA-Public Use
  Company Number: None

PATIENT
  Age: 32 Year
  Sex: Female
  Weight: 72.58 kg

DRUGS (1)
  1. VIIBRYD [Suspect]
     Route: 048
     Dates: start: 20111031, end: 20120417

REACTIONS (8)
  - Insomnia [None]
  - Mania [None]
  - Weight increased [None]
  - Bruxism [None]
  - Bruxism [None]
  - Loss of libido [None]
  - Dermatillomania [None]
  - Temporomandibular joint syndrome [None]
